FAERS Safety Report 7692667-X (Version None)
Quarter: 2011Q3

REPORT INFORMATION
  Report Type: 
  Country: None (occurrence: None)
  Receive Date: 20110819
  Receipt Date: 20110805
  Transmission Date: 20111222
  Serious: Yes (Hospitalization, Other)
  Sender: FDA-Public Use
  Company Number: JP-JNJFOC-20110802332

PATIENT
  Sex: Female

DRUGS (16)
  1. LEVOFLOXACIN [Suspect]
     Indication: BRONCHITIS
     Route: 048
     Dates: start: 20110627, end: 20110630
  2. RABEPRAZOLE SODIUM [Concomitant]
     Indication: PROPHYLAXIS AGAINST GASTROINTESTINAL ULCER
     Route: 048
     Dates: start: 20080701
  3. MUCODYNE [Concomitant]
     Indication: BRONCHITIS
     Route: 048
     Dates: start: 20110627, end: 20110630
  4. PREDNISOLONE [Concomitant]
     Route: 048
     Dates: start: 20080729, end: 20080811
  5. PREDNISOLONE [Concomitant]
     Route: 048
     Dates: start: 20080707, end: 20080720
  6. PREDNISOLONE [Concomitant]
     Route: 048
     Dates: start: 20080909, end: 20081117
  7. AMARYL [Concomitant]
     Indication: DIABETES MELLITUS
     Route: 048
     Dates: start: 20090301
  8. LASIX [Concomitant]
     Indication: CARDIAC FAILURE CHRONIC
     Route: 048
     Dates: start: 20090801
  9. BASEN [Concomitant]
     Indication: DIABETES MELLITUS
     Route: 048
     Dates: start: 20090301
  10. PREDNISOLONE [Concomitant]
     Indication: ALVEOLITIS ALLERGIC
     Route: 048
     Dates: start: 20080812, end: 20080908
  11. OLMESARTAN MEDOXOMIL [Concomitant]
     Indication: HYPERTENSION
     Route: 048
     Dates: start: 20080101
  12. ALENDRONATE SODIUM [Concomitant]
     Indication: OSTEOPOROSIS
     Route: 048
     Dates: start: 20080601
  13. LIVALO [Concomitant]
     Indication: DYSLIPIDAEMIA
     Route: 048
     Dates: start: 20090301
  14. PREDNISOLONE [Concomitant]
     Indication: PRODUCT USED FOR UNKNOWN INDICATION
     Route: 065
  15. PREDNISOLONE [Concomitant]
     Route: 048
     Dates: start: 20080721, end: 20080728
  16. PREDNISOLONE [Concomitant]
     Route: 048
     Dates: start: 20081118

REACTIONS (2)
  - CHEST DISCOMFORT [None]
  - HYPOGLYCAEMIA [None]
